FAERS Safety Report 5813457-6 (Version None)
Quarter: 2008Q3

REPORT INFORMATION
  Report Type: 
  Country: None (occurrence: None)
  Receive Date: 20080714
  Receipt Date: 20080627
  Transmission Date: 20090109
  Serious: Yes (Other)
  Sender: FDA-Public Use
  Company Number: A-NJ2008-20767

PATIENT
  Age: 30 Year
  Sex: Female

DRUGS (3)
  1. TRACLEER [Suspect]
     Indication: PULMONARY HYPERTENSION
     Dosage: ORAL
     Route: 048
     Dates: start: 20080111, end: 20080530
  2. REVATIO (SILDENAFIL CITRATE) [Concomitant]
  3. REMODULIN (TREPROSTINIL) [Concomitant]

REACTIONS (3)
  - DRUG EXPOSURE DURING PREGNANCY [None]
  - PREGNANCY [None]
  - RIGHT VENTRICULAR FAILURE [None]
